FAERS Safety Report 14903022 (Version 1)
Quarter: 2018Q2

REPORT INFORMATION
  Report Type: Spontaneous
  Country: US (occurrence: US)
  Receive Date: 20180516
  Receipt Date: 20180516
  Transmission Date: 20180711
  Serious: No
  Sender: FDA-Public Use
  Company Number: US-SA-2017SA118050

PATIENT
  Sex: Male

DRUGS (3)
  1. SOLOSTAR [Concomitant]
     Active Substance: DEVICE
     Indication: BLOOD GLUCOSE ABNORMAL
     Dates: start: 2007
  2. TRESIBA [Concomitant]
     Active Substance: INSULIN DEGLUDEC
  3. LANTUS SOLOSTAR [Suspect]
     Active Substance: INSULIN GLARGINE
     Indication: BLOOD GLUCOSE ABNORMAL
     Dosage: DOSE:70 UNIT(S)
     Route: 051
     Dates: start: 2007

REACTIONS (1)
  - Blood glucose abnormal [Unknown]
